FAERS Safety Report 15082701 (Version 1)
Quarter: 2018Q2

REPORT INFORMATION
  Report Type: Spontaneous
  Country: HU (occurrence: HU)
  Receive Date: 20180628
  Receipt Date: 20180628
  Transmission Date: 20180711
  Serious: Yes (Disabling)
  Sender: FDA-Public Use
  Company Number: HU-TEVA-2018-HU-915718

PATIENT
  Age: 77 Year
  Sex: Male

DRUGS (1)
  1. CLOPIDOGREL [Suspect]
     Active Substance: CLOPIDOGREL BISULFATE
     Indication: CARDIAC PACEMAKER INSERTION
     Route: 065
     Dates: end: 201512

REACTIONS (1)
  - Choroidal detachment [Not Recovered/Not Resolved]

NARRATIVE: CASE EVENT DATE: 20161222
